FAERS Safety Report 8288283-1 (Version None)
Quarter: 2012Q2

REPORT INFORMATION
  Report Type: 
  Country: None (occurrence: None)
  Receive Date: 20120416
  Receipt Date: 20120409
  Transmission Date: 20120825
  Serious: Yes (Hospitalization)
  Sender: FDA-Public Use
  Company Number: PHHY2012US030254

PATIENT
  Age: 56 Year
  Sex: Male

DRUGS (10)
  1. FINASTERIDE [Concomitant]
  2. GABAPENTIN [Suspect]
     Dosage: 900 MG, QD
  3. FERROUS SULFATE TAB [Concomitant]
  4. LANTUS [Concomitant]
  5. ASPIRIN [Concomitant]
  6. LACTULOSE [Concomitant]
  7. TAMSULOSIN HCL [Concomitant]
  8. DOCUSATE [Concomitant]
  9. SEVELAMER [Concomitant]
  10. DILTIAZEM HCL [Concomitant]

REACTIONS (12)
  - RENAL TUBULAR NECROSIS [None]
  - INCORRECT DOSE ADMINISTERED [None]
  - RENAL FAILURE ACUTE [None]
  - ELECTROLYTE IMBALANCE [None]
  - ALTERED STATE OF CONSCIOUSNESS [None]
  - SOMNOLENCE [None]
  - MUSCLE TWITCHING [None]
  - MYOCLONUS [None]
  - TREMOR [None]
  - ANURIA [None]
  - DRUG LEVEL INCREASED [None]
  - PAIN IN EXTREMITY [None]
